FAERS Safety Report 8533855-X (Version None)
Quarter: 2012Q3

REPORT INFORMATION
  Report Type: 
  Country: None (occurrence: None)
  Receive Date: 20120724
  Receipt Date: 20120709
  Transmission Date: 20120928
  Serious: Yes (Other)
  Sender: FDA-Public Use
  Company Number: US-WATSON-2012-10808

PATIENT
  Sex: Female
  Weight: 54 kg

DRUGS (10)
  1. VICODIN [Suspect]
     Indication: PAIN
  2. HEROIN [Suspect]
     Indication: PRODUCT USED FOR UNKNOWN INDICATION
     Route: 065
  3. VICODIN [Suspect]
     Indication: BACK PAIN
     Dosage: UNK, 6 DAILY
     Route: 048
     Dates: start: 19930101, end: 20120401
  4. VICODIN [Suspect]
     Indication: HAEMORRHOIDS
  5. IBUPROFEN [Concomitant]
     Indication: HAEMORRHOIDS
  6. ASPIRIN [Concomitant]
     Dosage: UNK DOSE 3 - 4 QD
     Route: 065
  7. SOMA [Concomitant]
     Indication: PAIN
     Dosage: UNK DOSE, BID
     Route: 065
  8. CYMBALTA [Concomitant]
     Indication: DEPRESSION
     Dosage: UNK DOSE QD
     Route: 065
  9. XANAX [Concomitant]
     Indication: PRODUCT USED FOR UNKNOWN INDICATION
     Dosage: UNK DOSE, QD
     Route: 065
  10. IBUPROFEN [Concomitant]
     Indication: PAIN
     Dosage: UNK DOSE BID
     Route: 065

REACTIONS (5)
  - FATIGUE [None]
  - DRUG DEPENDENCE [None]
  - IMPRISONMENT [None]
  - CONSTIPATION [None]
  - NAUSEA [None]
